FAERS Safety Report 17323984 (Version 1)
Quarter: 2020Q1

REPORT INFORMATION
  Report Type: Spontaneous
  Country: US (occurrence: US)
  Receive Date: 20200109
  Receipt Date: 20200109
  Transmission Date: 20200409
  Serious: No
  Sender: FDA-Public Use
  Company Number: None

PATIENT
  Age: 44 Year
  Sex: Female

DRUGS (1)
  1. METHOTREXATE 2.5MG TAB [Suspect]
     Active Substance: METHOTREXATE
     Indication: RHEUMATOID ARTHRITIS
     Dosage: ?          OTHER DOSE:UNKNOWN;OTHER FREQUENCY:OTHER;?
     Route: 048
     Dates: start: 201908, end: 201909

REACTIONS (1)
  - Treatment failure [None]

NARRATIVE: CASE EVENT DATE: 20200109
